FAERS Safety Report 14232082 (Version 2)
Quarter: 2017Q4

REPORT INFORMATION
  Report Type: Spontaneous
  Country: US (occurrence: US)
  Receive Date: 20171128
  Receipt Date: 20171211
  Transmission Date: 20180321
  Serious: Yes (Other)
  Sender: FDA-Public Use
  Company Number: US-OTSUKA-2017_025984

PATIENT

DRUGS (1)
  1. ABILIFY [Suspect]
     Active Substance: ARIPIPRAZOLE
     Indication: PRODUCT USED FOR UNKNOWN INDICATION
     Dosage: UNK
     Route: 065
     Dates: start: 2012, end: 2017

REACTIONS (6)
  - Brain injury [Unknown]
  - Emotional distress [Unknown]
  - Gambling disorder [Unknown]
  - Binge eating [Unknown]
  - Injury [Unknown]
  - Mental disorder [Unknown]
